FAERS Safety Report 8418014-3 (Version None)
Quarter: 2012Q2

REPORT INFORMATION
  Report Type: 
  Country: None (occurrence: None)
  Receive Date: 20120607
  Receipt Date: 20120528
  Transmission Date: 20120825
  Serious: Yes (Other)
  Sender: FDA-Public Use
  Company Number: CA-JNJFOC-20120520007

PATIENT
  Sex: Female
  Weight: 72.7 kg

DRUGS (10)
  1. REMICADE [Suspect]
     Route: 042
     Dates: start: 20120528
  2. HYDROXYZINE [Concomitant]
     Route: 065
  3. PROZAC [Concomitant]
     Route: 065
  4. SYNTHROID [Concomitant]
     Route: 065
  5. METHOTREXATE [Concomitant]
     Route: 065
  6. CETIRIZINE HCL [Concomitant]
     Route: 065
  7. REMICADE [Suspect]
     Indication: PSORIASIS
     Route: 042
     Dates: start: 20101213
  8. OMEPRAZOLE (PRISOLEC) [Concomitant]
     Route: 065
  9. FOLIC ACID [Concomitant]
     Route: 065
  10. NORVASC [Concomitant]
     Route: 065

REACTIONS (1)
  - ANGIOEDEMA [None]
